FAERS Safety Report 13052027 (Version 1)
Quarter: 2016Q4

REPORT INFORMATION
  Report Type: Spontaneous
  Country: FR (occurrence: FR)
  Receive Date: 20161221
  Receipt Date: 20161221
  Transmission Date: 20170207
  Serious: Yes (Disabling)
  Sender: FDA-Public Use
  Company Number: FR-SA-2016SA229816

PATIENT
  Age: 15 Year
  Sex: Female

DRUGS (1)
  1. LOVENOX [Suspect]
     Active Substance: ENOXAPARIN SODIUM
     Indication: SEXUAL ABUSE
     Route: 030

REACTIONS (2)
  - Accidental exposure to product [Unknown]
  - Incorrect route of drug administration [Unknown]
